FAERS Safety Report 9461181 (Version 1)
Quarter: 2013Q3

REPORT INFORMATION
  Report Type: Spontaneous
  Country: US (occurrence: None)
  Receive Date: 20130814
  Receipt Date: 20130814
  Transmission Date: 20140515
  Serious: Yes (Other)
  Sender: FDA-Public Use
  Company Number: None

PATIENT
  Age: 47 Year
  Sex: Female
  Weight: 95.26 kg

DRUGS (1)
  1. MELOXICAM [Suspect]
     Indication: ARTHRITIS

REACTIONS (7)
  - Hypertension [None]
  - Heart rate increased [None]
  - Abdominal pain upper [None]
  - Constipation [None]
  - Dyspnoea [None]
  - Pruritus [None]
  - Rash [None]
